FAERS Safety Report 8097373-8 (Version None)
Quarter: 2012Q1

REPORT INFORMATION
  Report Type: 
  Country: None (occurrence: None)
  Receive Date: 20120128
  Receipt Date: 20110621
  Transmission Date: 20120608
  Serious: No
  Sender: FDA-Public Use
  Company Number: US-ABBOTT-11P-163-0734412-00

PATIENT
  Sex: Female

DRUGS (13)
  1. EFFEXOR XR [Concomitant]
     Indication: ANXIETY
  2. ALLEGRA [Concomitant]
     Indication: HYPERSENSITIVITY
     Dosage: 1 IN 1 DAY, AS REQUIRED
     Route: 048
  3. PREDNISONE TAB [Concomitant]
     Indication: RHEUMATOID ARTHRITIS
     Dosage: 1 IN 1 DAY, AS REQUIRED
     Route: 048
  4. SKELAXIN [Concomitant]
     Indication: MYALGIA
     Dosage: 1 IN 8 HOURS, AS REQUIRED
     Route: 048
  5. ADDERALL 5 [Concomitant]
     Indication: ATTENTION DEFICIT/HYPERACTIVITY DISORDER
     Route: 050
  6. PERCOCET [Concomitant]
     Indication: ARTHRALGIA
     Dosage: 2 IN 1 DAY, AS REQUIRED, MAX 6 PER DAY
     Route: 048
  7. MACROBID [Concomitant]
     Indication: SEXUALLY ACTIVE
     Route: 048
  8. ESTROGEN METHYLTESTOS [Concomitant]
     Indication: HORMONE REPLACEMENT THERAPY
     Route: 048
  9. LEFLUNOMIDE [Concomitant]
     Indication: RHEUMATOID ARTHRITIS
     Route: 048
  10. HUMIRA [Suspect]
     Indication: RHEUMATOID ARTHRITIS
     Route: 058
     Dates: start: 20110526
  11. EFFEXOR XR [Concomitant]
     Indication: DEPRESSION
     Route: 048
  12. TOPAMAX [Concomitant]
     Indication: MIGRAINE
     Route: 048
  13. FOLIC ACID [Concomitant]
     Indication: VITAMIN SUPPLEMENTATION
     Route: 048

REACTIONS (1)
  - DYSGEUSIA [None]
